FAERS Safety Report 21884213 (Version 3)
Quarter: 2023Q1

REPORT INFORMATION
  Report Type: Spontaneous
  Country: US (occurrence: US)
  Receive Date: 20230119
  Receipt Date: 20230131
  Transmission Date: 20230418
  Serious: No
  Sender: FDA-Public Use
  Company Number: US-ALKERMES INC.-ALK-2023-000215

PATIENT
  Age: 39 Year
  Sex: Female
  Weight: 81.179 kg

DRUGS (5)
  1. VIVITROL [Suspect]
     Active Substance: NALTREXONE
     Indication: Drug dependence
     Dosage: 380 MILLIGRAM, Q4WK
     Route: 030
     Dates: start: 20221017
  2. TRAZODONE [Concomitant]
     Active Substance: TRAZODONE HYDROCHLORIDE
     Indication: Insomnia
     Dosage: 50-100 MILLIGRAM, QD
     Route: 048
     Dates: start: 20220714
  3. HYDROXYZINE [Concomitant]
     Active Substance: HYDROXYZINE HYDROCHLORIDE
     Indication: Anxiety
     Dosage: 50 MILLIGRAM, QD
     Route: 048
     Dates: start: 20220714
  4. FLONASE ALLERGY RELIEF [Concomitant]
     Active Substance: FLUTICASONE PROPIONATE
     Indication: Rhinitis
     Dosage: 50 MICROGRAM, QD
     Route: 045
     Dates: start: 20221214
  5. DIALYVITE VITAMIN D3 MAX [Concomitant]
     Indication: Vitamin D deficiency
     Dosage: 1250 MICROGRAM, QWK
     Route: 048
     Dates: start: 20220718

REACTIONS (11)
  - Gait inability [Recovering/Resolving]
  - Sciatic nerve injury [Recovering/Resolving]
  - Needle issue [Recovered/Resolved]
  - Hypoaesthesia [Recovering/Resolving]
  - Injection site reaction [Recovering/Resolving]
  - Injection site hypoaesthesia [Recovering/Resolving]
  - Injection site paraesthesia [Recovering/Resolving]
  - Injection site pain [Recovering/Resolving]
  - Injection site bruising [Recovering/Resolving]
  - Injection site erythema [Recovering/Resolving]
  - Injection site indentation [Recovering/Resolving]

NARRATIVE: CASE EVENT DATE: 20230113
